FAERS Safety Report 10223564 (Version 2)
Quarter: 2014Q2

REPORT INFORMATION
  Report Type: Report from Study
  Country: FR (occurrence: FR)
  Receive Date: 20140609
  Receipt Date: 20140609
  Transmission Date: 20141212
  Serious: Yes (Other)
  Sender: FDA-Public Use
  Company Number: FR-UCBSA-121784

PATIENT
  Age: 67 Year
  Sex: 0
  Weight: 55 kg

DRUGS (6)
  1. CERTOLIZUMAB PEGOL RA [Suspect]
     Indication: RHEUMATOID ARTHRITIS
     Dosage: 400 MG, EV 2 WEEKS(QOW)
     Dates: start: 20121130, end: 20121228
  2. CERTOLIZUMAB PEGOL RA [Suspect]
     Dosage: 200 MG, EV 2 WEEKS(QOW)
     Dates: start: 20130111, end: 2013
  3. CERTOLIZUMAB PEGOL RA [Suspect]
     Dosage: UNK
     Dates: start: 20140125
  4. AP CALCIUM+VIT D [Concomitant]
     Indication: OSTEOPOROSIS
     Dosage: 500MG/400IU
     Dates: start: 201111, end: 201402
  5. HYDROCORTISONE 21-(DISODIUM PHOSPHATE) [Concomitant]
     Indication: ADRENAL INSUFFICIENCY
     Dosage: 10 MG, 2X/DAY (BID)
     Dates: start: 20130507, end: 201401
  6. EXFORGE COMBINATION [Concomitant]
     Indication: HYPERTENSION
     Dosage: 5MG/80MG DAILY
     Dates: start: 20130615

REACTIONS (1)
  - Hepatocellular injury [Recovered/Resolved]
